FAERS Safety Report 16130506 (Version 1)
Quarter: 2019Q1

REPORT INFORMATION
  Report Type: Spontaneous
  Country: US (occurrence: US)
  Receive Date: 20190328
  Receipt Date: 20190328
  Transmission Date: 20190418
  Serious: No
  Sender: FDA-Public Use
  Company Number: US-MMM-8C0WDTMJ

PATIENT
  Age: 36 Year
  Sex: Female

DRUGS (1)
  1. SUBLOCADE [Suspect]
     Active Substance: BUPRENORPHINE
     Indication: DRUG DEPENDENCE
     Dosage: 100 MILLIGRAM, QMO
     Route: 058
     Dates: start: 20190131

REACTIONS (3)
  - Injection site pain [Recovered/Resolved]
  - Injection site pruritus [Recovered/Resolved]
  - Injection site bruising [Recovered/Resolved]

NARRATIVE: CASE EVENT DATE: 20190131
